FAERS Safety Report 24574169 (Version 1)
Quarter: 2024Q4

REPORT INFORMATION
  Report Type: Spontaneous
  Country: US (occurrence: US)
  Receive Date: 20241104
  Receipt Date: 20241104
  Transmission Date: 20250115
  Serious: Yes (Hospitalization, Other)
  Sender: AUROBINDO
  Company Number: US-AUROBINDO-AUR-APL-2024-053157

PATIENT
  Age: 78 Year
  Sex: Female

DRUGS (2)
  1. POLYETHYLENE GLYCOL [Suspect]
     Active Substance: POLYETHYLENE GLYCOL
     Indication: Colonoscopy
     Dosage: UNK
     Route: 065
  2. BISACODYL [Suspect]
     Active Substance: BISACODYL
     Indication: Colonoscopy
     Dosage: UNK
     Route: 065

REACTIONS (1)
  - Colitis ischaemic [Unknown]
